FAERS Safety Report 24003499 (Version 1)
Quarter: 2024Q2

REPORT INFORMATION
  Report Type: Spontaneous
  Country: ES (occurrence: ES)
  Receive Date: 20240624
  Receipt Date: 20240624
  Transmission Date: 20240715
  Serious: Yes (Death, Hospitalization, Other)
  Sender: FDA-Public Use
  Company Number: ES-ROCHE-2952685

PATIENT
  Age: 78 Year
  Sex: Male
  Weight: 68 kg

DRUGS (27)
  1. PEMBROLIZUMAB [Suspect]
     Active Substance: PEMBROLIZUMAB
     Indication: Non-small cell lung cancer metastatic
     Dosage: DATE OF MOST RECENT DOSE OF STUDY DRUG PRIOR TO AE AND SAE ONSET: 20-OCT-2021
     Route: 042
     Dates: start: 20210614
  2. PEMBROLIZUMAB [Suspect]
     Active Substance: PEMBROLIZUMAB
     Dosage: UNK
  3. CARBOPLATIN [Suspect]
     Active Substance: CARBOPLATIN
     Indication: Non-small cell lung cancer metastatic
     Dosage: 376.47 MILLIGRAM, Q3W
     Route: 042
     Dates: start: 20210614
  4. CARBOPLATIN [Suspect]
     Active Substance: CARBOPLATIN
     Dosage: START DATE OF MOST RECENT DOSE OF STUDY DRUG PRIOR TO AE: 18-AUG-2021
     Route: 042
  5. PEMETREXED [Suspect]
     Active Substance: PEMETREXED
     Indication: Non-small cell lung cancer metastatic
     Dosage: 890 MILLIGRAM, Q3W
     Route: 042
     Dates: start: 20210614
  6. PEMETREXED [Suspect]
     Active Substance: PEMETREXED
     Dosage: START DATE OF MOST RECENT DOSE OF STUDY DRUG PRIOR TO AE 20-OCT-2021
     Route: 042
  7. FOLIC ACID [Concomitant]
     Active Substance: FOLIC ACID
     Dosage: 400 MICROGRAM, QD
     Dates: start: 20210511
  8. LINAGLIPTIN [Concomitant]
     Active Substance: LINAGLIPTIN
     Indication: Diabetes mellitus
     Dosage: 5 MILLIGRAM, QD
     Dates: start: 2012
  9. NOVORAPID [Concomitant]
     Active Substance: INSULIN ASPART
     Indication: Diabetes mellitus
     Dates: start: 20211104, end: 20211130
  10. QUETIAPINE [Concomitant]
     Active Substance: QUETIAPINE
     Indication: Prophylaxis
     Dosage: 25 MILLIGRAM
     Dates: start: 20211114, end: 20211129
  11. ATORVASTATIN [Concomitant]
     Active Substance: ATORVASTATIN
     Indication: Hypercholesterolaemia
     Dates: start: 20211104, end: 20211114
  12. INSULIN GLARGINE [Concomitant]
     Active Substance: INSULIN GLARGINE
     Indication: Diabetes mellitus
     Dosage: 300 INTERNATIONAL UNIT
     Dates: start: 2019
  13. FUROSEMIDE [Concomitant]
     Active Substance: FUROSEMIDE
     Indication: Prophylaxis
     Dosage: 20 MILLIGRAM
     Dates: start: 20211114, end: 20211125
  14. SIMVASTATIN [Concomitant]
     Active Substance: SIMVASTATIN
     Indication: Hypercholesterolaemia
     Dosage: 20 MILLIGRAM
     Dates: start: 2005
  15. ASPIRIN [Concomitant]
     Active Substance: ASPIRIN
     Dosage: 100 MILLIGRAM
     Dates: start: 2017
  16. RAMIPRIL [Concomitant]
     Active Substance: RAMIPRIL
     Indication: Hypertension
     Dosage: 5 MILLIGRAM
     Dates: start: 2017
  17. CHLORPROMAZINE [Concomitant]
     Active Substance: CHLORPROMAZINE
     Indication: Prophylaxis
     Dates: start: 20211120, end: 20211130
  18. INSULIN NOS [Concomitant]
     Active Substance: INSULIN NOS
     Indication: Diabetes mellitus
     Dosage: 50 INTERNATIONAL UNIT
     Dates: start: 20211107, end: 20211114
  19. TOUJEO [Concomitant]
     Active Substance: INSULIN GLARGINE
     Indication: Diabetes mellitus
     Dosage: 16 INTERNATIONAL UNIT
     Dates: start: 20211104, end: 20211114
  20. TOUJEO [Concomitant]
     Active Substance: INSULIN GLARGINE
     Dosage: 12 INTERNATIONAL UNIT
     Dates: start: 20211123, end: 20211201
  21. LORAZEPAM [Concomitant]
     Active Substance: LORAZEPAM
     Indication: Prophylaxis
     Dosage: 1 MILLIGRAM
     Dates: start: 20211104, end: 20211114
  22. OMEPRAZOLE [Concomitant]
     Active Substance: DONEPEZIL HYDROCHLORIDE\OMEPRAZOLE\OMEPRAZOLE MAGNESIUM
     Dosage: 40 MILLIGRAM
     Dates: start: 20211126, end: 20211201
  23. OMEPRAZOLE [Concomitant]
     Active Substance: DONEPEZIL HYDROCHLORIDE\OMEPRAZOLE\OMEPRAZOLE MAGNESIUM
     Dosage: 20 MILLIGRAM
     Dates: start: 20211104, end: 20211119
  24. OMEPRAZOLE [Concomitant]
     Active Substance: DONEPEZIL HYDROCHLORIDE\OMEPRAZOLE\OMEPRAZOLE MAGNESIUM
     Dosage: 40 MILLIGRAM
     Dates: start: 2005
  25. OMEPRAZOLE [Concomitant]
     Active Substance: DONEPEZIL HYDROCHLORIDE\OMEPRAZOLE\OMEPRAZOLE MAGNESIUM
     Dosage: 100 MILLIGRAM
     Dates: start: 20211120, end: 20211121
  26. OMEPRAZOLE [Concomitant]
     Active Substance: DONEPEZIL HYDROCHLORIDE\OMEPRAZOLE\OMEPRAZOLE MAGNESIUM
     Dosage: 40 MILLIGRAM
     Dates: start: 20211122, end: 20211125
  27. CYANOCOBALAMIN [Concomitant]
     Active Substance: CYANOCOBALAMIN
     Indication: Anaemia prophylaxis
     Dosage: 1 MILLIGRAM
     Dates: start: 20211117, end: 20211117

REACTIONS (1)
  - Interstitial lung disease [Fatal]

NARRATIVE: CASE EVENT DATE: 20211104
